FAERS Safety Report 5141616-7 (Version None)
Quarter: 2006Q4

REPORT INFORMATION
  Report Type: 
  Country: None (occurrence: None)
  Receive Date: 20061026
  Receipt Date: 20061012
  Transmission Date: 20070319
  Serious: Yes (Hospitalization)
  Sender: FDA-Public Use
  Company Number: 2006SS000073

PATIENT
  Age: 78 Year
  Sex: Male

DRUGS (2)
  1. MYOBLOC [Suspect]
     Indication: SALIVARY HYPERSECRETION
     Dosage: 2500 UNITS; INTRAGLANDULAR
     Dates: start: 20060101
  2. STALEVO 100 [Concomitant]

REACTIONS (15)
  - FULL BLOOD COUNT INCREASED [None]
  - GINGIVAL DISORDER [None]
  - HEADACHE [None]
  - INFECTION [None]
  - JAW DISORDER [None]
  - LYMPHADENOPATHY [None]
  - MUMPS ANTIBODY TEST POSITIVE [None]
  - ORAL MUCOSAL DISCOLOURATION [None]
  - PAIN IN EXTREMITY [None]
  - PARKINSON'S DISEASE [None]
  - PAROTID GLAND ENLARGEMENT [None]
  - RED BLOOD CELL SEDIMENTATION RATE INCREASED [None]
  - SALIVARY GLAND DISORDER [None]
  - SALIVARY GLAND NEOPLASM [None]
  - VENOUS THROMBOSIS [None]
